FAERS Safety Report 6170090-7 (Version None)
Quarter: 2009Q2

REPORT INFORMATION
  Report Type: 
  Country: None (occurrence: None)
  Receive Date: 20090428
  Receipt Date: 20090424
  Transmission Date: 20091009
  Serious: Yes (Hospitalization)
  Sender: FDA-Public Use
  Company Number: B0485359A

PATIENT
  Sex: Female
  Weight: 18 kg

DRUGS (5)
  1. ABACAVIR [Suspect]
     Indication: HIV INFECTION
     Dosage: .5TAB TWICE PER DAY
     Route: 048
     Dates: start: 20070522
  2. EFAVIRENZ [Suspect]
     Indication: HIV INFECTION
     Dosage: 250MG PER DAY
     Route: 048
     Dates: start: 20070522
  3. COMBIVIR [Suspect]
     Indication: HIV INFECTION
     Dosage: .5TAB TWICE PER DAY
     Route: 048
     Dates: start: 20070522, end: 20070820
  4. CO-TRIMOXAZOLE [Suspect]
     Dates: start: 20070507, end: 20070820
  5. MULTI-VITAMIN [Concomitant]

REACTIONS (4)
  - ANAEMIA [None]
  - COUGH [None]
  - HYPERSENSITIVITY [None]
  - PYREXIA [None]
